FAERS Safety Report 24155847 (Version 1)
Quarter: 2024Q3

REPORT INFORMATION
  Report Type: Spontaneous
  Country: US (occurrence: US)
  Receive Date: 20240731
  Receipt Date: 20240731
  Transmission Date: 20241017
  Serious: Yes (Hospitalization, Other)
  Sender: RANBAXY
  Company Number: US-SUN PHARMACEUTICAL INDUSTRIES LTD-2024R1-459421

PATIENT
  Age: 33 Year
  Sex: Male

DRUGS (5)
  1. PREDNISONE [Suspect]
     Active Substance: PREDNISONE
     Indication: Giant cell myocarditis
     Dosage: UNK
     Route: 065
  2. PREDNISONE [Suspect]
     Active Substance: PREDNISONE
     Dosage: 100 MILLIGRAM
     Route: 065
  3. MYCOPHENOLIC ACID [Suspect]
     Active Substance: MYCOPHENOLIC ACID
     Indication: Giant cell myocarditis
     Dosage: UNK
     Route: 065
  4. MYCOPHENOLIC ACID [Suspect]
     Active Substance: MYCOPHENOLIC ACID
     Dosage: 1500 MILLIGRAM, BID
     Route: 065
  5. TACROLIMUS [Suspect]
     Active Substance: TACROLIMUS
     Indication: Giant cell myocarditis
     Dosage: UNK
     Route: 065

REACTIONS (7)
  - Condition aggravated [Unknown]
  - Left ventricular failure [Recovering/Resolving]
  - Dyspnoea paroxysmal nocturnal [Recovering/Resolving]
  - Diarrhoea [Recovering/Resolving]
  - Gastroenteritis Escherichia coli [Recovering/Resolving]
  - Nocardiosis [Recovering/Resolving]
  - Norovirus infection [Recovering/Resolving]
